FAERS Safety Report 7681605-1 (Version None)
Quarter: 2011Q3

REPORT INFORMATION
  Report Type: 
  Country: None (occurrence: None)
  Receive Date: 20110812
  Receipt Date: 20110804
  Transmission Date: 20111222
  Serious: Yes (Hospitalization)
  Sender: FDA-Public Use
  Company Number: PHHO2011US13445

PATIENT
  Sex: Female
  Weight: 48.073 kg

DRUGS (12)
  1. ASPIRIN [Concomitant]
     Dosage: 81 MG, QD
     Route: 048
  2. LORAZEPAM [Concomitant]
     Indication: NAUSEA
     Dosage: 0.5 MG, Q6H, PRN
     Route: 048
  3. SANDOSTATIN LAR [Suspect]
     Indication: CARCINOID TUMOUR
     Dosage: 30 MG, Q28 DAYS
     Dates: start: 20080114, end: 20110707
  4. DIMENHYDRINATE [Concomitant]
     Dosage: 50 MG, QD, PRN
     Route: 048
  5. VITAMIN B COMPLEX CAP [Concomitant]
  6. RAD001C [Suspect]
     Indication: CHEMOTHERAPY MULTIPLE AGENTS SYSTEMIC
     Dosage: 5 MG, UNK
     Route: 048
     Dates: start: 20081001, end: 20110803
  7. ULTRAM [Concomitant]
     Dosage: 50-100 MG, Q6H, PRN
     Route: 048
  8. PLACEBO [Suspect]
     Indication: CARCINOID TUMOUR
     Dosage: PLACEBO
     Dates: start: 20080114, end: 20080929
  9. CLONIDINE [Concomitant]
     Indication: BLOOD PRESSURE SYSTOLIC
     Dosage: 0.1 MG, BID, PRN
     Route: 048
  10. LISINOPRIL [Concomitant]
     Dosage: 10 MG, QD
     Route: 048
  11. MULTI-VITAMIN [Concomitant]
     Dosage: 1 U, QD
     Route: 048
  12. IRON W/VITAMINS NOS [Concomitant]
     Dosage: 1 U, QD
     Route: 048

REACTIONS (3)
  - DECREASED APPETITE [None]
  - RENAL FAILURE [None]
  - ASTHENIA [None]
